FAERS Safety Report 6609257-X (Version None)
Quarter: 2010Q1

REPORT INFORMATION
  Report Type: 
  Country: None (occurrence: None)
  Receive Date: 20100223
  Receipt Date: 20100217
  Transmission Date: 20100710
  Serious: Yes (Other)
  Sender: FDA-Public Use
  Company Number: 1000011910

PATIENT
  Age: 24 Year
  Sex: Female

DRUGS (4)
  1. CELEXA [Suspect]
  2. TOPAMAX [Suspect]
  3. MICRONOR [Suspect]
     Indication: CONTRACEPTION
  4. DICYCLOMINE [Suspect]
     Indication: IRRITABLE BOWEL SYNDROME

REACTIONS (1)
  - LUPUS-LIKE SYNDROME [None]
